FAERS Safety Report 4872686-9 (Version None)
Quarter: 2006Q1

REPORT INFORMATION
  Report Type: 
  Country: None (occurrence: None)
  Receive Date: 20060103
  Receipt Date: 20051219
  Transmission Date: 20060701
  Serious: Yes (Hospitalization)
  Sender: FDA-Public Use
  Company Number: S05-USA-05285-01

PATIENT
  Age: 56 Year
  Sex: Female

DRUGS (6)
  1. LEXAPRO [Suspect]
     Indication: DEPRESSION
     Dosage: 10 MG QD PO
     Route: 048
     Dates: start: 20030101
  2. TOPROL-XL [Concomitant]
  3. ASPIRIN [Concomitant]
  4. CRESTOR [Concomitant]
  5. VITAMINS [Concomitant]
  6. PREMPRO [Concomitant]

REACTIONS (3)
  - NEPHROLITHIASIS [None]
  - SEPSIS [None]
  - URETERIC OBSTRUCTION [None]
